FAERS Safety Report 22608093 (Version 4)
Quarter: 2024Q2

REPORT INFORMATION
  Report Type: Other
  Country: KW (occurrence: KW)
  Receive Date: 20230616
  Receipt Date: 20240521
  Transmission Date: 20240716
  Serious: Yes (Hospitalization)
  Sender: FDA-Public Use
  Company Number: KW-002147023-NVSC2023KW131524

PATIENT
  Age: 72 Year
  Sex: Female

DRUGS (4)
  1. LUCENTIS [Suspect]
     Active Substance: RANIBIZUMAB
     Indication: Neovascular age-related macular degeneration
     Dosage: 10 MG, QMO
     Route: 047
     Dates: start: 20221123
  2. LUCENTIS [Suspect]
     Active Substance: RANIBIZUMAB
     Dosage: 10 MG, QMO
     Route: 047
     Dates: start: 20230510
  3. LUCENTIS [Suspect]
     Active Substance: RANIBIZUMAB
     Route: 065
     Dates: start: 20230705
  4. LUCENTIS [Suspect]
     Active Substance: RANIBIZUMAB
     Route: 047
     Dates: start: 20221123, end: 20240131

REACTIONS (3)
  - Balance disorder [Recovering/Resolving]
  - Dizziness [Recovering/Resolving]
  - Dysstasia [Recovering/Resolving]

NARRATIVE: CASE EVENT DATE: 20230602
